FAERS Safety Report 6742689-8 (Version None)
Quarter: 2010Q2

REPORT INFORMATION
  Report Type: 
  Country: None (occurrence: None)
  Receive Date: 20100526
  Receipt Date: 20090812
  Transmission Date: 20101027
  Serious: No
  Sender: FDA-Public Use
  Company Number: US-ABBOTT-09P-163-0591277-00

PATIENT
  Sex: Female
  Weight: 55 kg

DRUGS (2)
  1. ZEMPLAR 2MCG [Suspect]
     Indication: HYPERPARATHYROIDISM
     Dosage: 2MCG THREE PER WEEK
     Route: 048
     Dates: end: 20090701
  2. HECTOROL [Suspect]
     Indication: HYPERPARATHYROIDISM
     Route: 048
     Dates: start: 20090701, end: 20090801

REACTIONS (2)
  - PRURITUS [None]
  - RASH GENERALISED [None]
